FAERS Safety Report 7367506-7 (Version None)
Quarter: 2011Q1

REPORT INFORMATION
  Report Type: 
  Country: None (occurrence: None)
  Receive Date: 20110322
  Receipt Date: 20110223
  Transmission Date: 20110831
  Serious: No
  Sender: FDA-Public Use
  Company Number: US-B.I. PHARMACEUTICALS,INC./RIDGEFIELD-2011-BP-06558BP

PATIENT
  Sex: Male

DRUGS (17)
  1. LOVAZA [Concomitant]
     Dosage: 2 G
     Route: 048
  2. TRILIPIX [Concomitant]
     Dosage: 135 MG
     Route: 048
  3. CLONAZEPAM [Concomitant]
     Dosage: 0.5 MG
     Route: 048
  4. RESCON [Concomitant]
     Route: 048
  5. SYNTHROID [Concomitant]
     Indication: THYROID DISORDER
     Dosage: 125 MG
     Route: 048
  6. HUMALOG [Concomitant]
     Indication: DIABETES MELLITUS
     Route: 058
  7. DEXILANT [Concomitant]
     Dosage: 60 MG
     Route: 048
  8. AMLODIPINE [Concomitant]
     Indication: HYPERTENSION
     Dosage: 10 MG
     Route: 048
  9. RAMIPRIL [Concomitant]
     Dosage: 10 MG
     Route: 048
  10. GLYBURIDE [Concomitant]
     Indication: DIABETES MELLITUS
     Dosage: 8 MG
     Route: 048
  11. JANUVIA [Concomitant]
     Indication: DIABETES MELLITUS
     Dosage: 100 MG
     Route: 048
  12. FUROSEMIDE [Concomitant]
     Indication: CORONARY ARTERY DISEASE
     Dosage: 20 MG
     Route: 048
  13. CRESTOR [Concomitant]
     Dosage: 10 MG
     Route: 048
  14. KLOR-CON [Concomitant]
     Indication: PROPHYLAXIS
     Dosage: 20 MEQ
     Route: 048
  15. PRADAXA [Suspect]
     Indication: ATRIAL FIBRILLATION
     Dosage: 300 MG
     Route: 048
     Dates: start: 20110110
  16. ASPIRIN [Concomitant]
     Indication: CORONARY ARTERY DISEASE
     Dosage: 81 MG
     Route: 048
  17. METOPROLOL [Concomitant]
     Dosage: 50 MG
     Route: 048

REACTIONS (1)
  - BLOOD GLUCOSE INCREASED [None]
